FAERS Safety Report 12982336 (Version 2)
Quarter: 2016Q4

REPORT INFORMATION
  Report Type: Spontaneous
  Country: ES (occurrence: ES)
  Receive Date: 20161129
  Receipt Date: 20161130
  Transmission Date: 20170207
  Serious: Yes (Death, Hospitalization)
  Sender: FDA-Public Use
  Company Number: PHHY2016ES160784

PATIENT
  Age: 82 Year
  Sex: Male

DRUGS (2)
  1. ENTRESTO [Suspect]
     Active Substance: SACUBITRIL\VALSARTAN
     Indication: CARDIAC FAILURE CHRONIC
     Dosage: UNK
     Route: 065
     Dates: start: 20161114
  2. OXYGEN. [Suspect]
     Active Substance: OXYGEN
     Indication: RESPIRATORY DISORDER
     Route: 065

REACTIONS (1)
  - Respiratory acidosis [Fatal]

NARRATIVE: CASE EVENT DATE: 20161122
